FAERS Safety Report 14306663 (Version 2)
Quarter: 2018Q1

REPORT INFORMATION
  Report Type: Report from Study
  Country: AU (occurrence: AU)
  Receive Date: 20171220
  Receipt Date: 20180112
  Transmission Date: 20180509
  Serious: Yes (Other)
  Sender: FDA-Public Use
  Company Number: AU-BEH-2017086021

PATIENT
  Age: 28 Year
  Sex: Male
  Weight: 86 kg

DRUGS (2)
  1. RIASTAP [Suspect]
     Active Substance: FIBRINOGEN HUMAN
     Indication: HYPOFIBRINOGENAEMIA
     Dosage: 2 G, SINGLE
     Route: 042
     Dates: start: 20170713, end: 20170713
  2. RIASTAP [Suspect]
     Active Substance: FIBRINOGEN HUMAN
     Indication: TRAUMATIC HAEMORRHAGE

REACTIONS (1)
  - Ankle fracture [Recovering/Resolving]

NARRATIVE: CASE EVENT DATE: 20170715
